FAERS Safety Report 9534667 (Version 2)
Quarter: 2013Q3

REPORT INFORMATION
  Report Type: Spontaneous
  Country: GB (occurrence: GB)
  Receive Date: 20130918
  Receipt Date: 20130918
  Transmission Date: 20140515
  Serious: Yes (Other)
  Sender: FDA-Public Use
  Company Number: GB-PFIZER INC-2013220778

PATIENT
  Age: 47 Year
  Sex: Female

DRUGS (3)
  1. CHAMPIX [Suspect]
     Indication: SMOKING CESSATION THERAPY
     Dosage: 1 MG, 2X/DAY
  2. RIFAMPICIN [Interacting]
     Dosage: UNK
  3. CLINDAMYCIN [Concomitant]
     Dosage: UNK

REACTIONS (3)
  - Osteomyelitis [Recovered/Resolved]
  - Facial pain [Recovered/Resolved]
  - Drug interaction [Recovered/Resolved]
